FAERS Safety Report 5758411-8 (Version None)
Quarter: 2008Q2

REPORT INFORMATION
  Report Type: 
  Country: None (occurrence: None)
  Receive Date: 20080530
  Receipt Date: 20080520
  Transmission Date: 20081010
  Serious: Yes (Other)
  Sender: FDA-Public Use
  Company Number: 2008AP000253

PATIENT
  Age: 38 Year
  Sex: Female

DRUGS (14)
  1. PAROXETINE HCL [Suspect]
     Dosage: 20 MG; QD; 30 MG; QD; 20 MG; QOD
     Dates: start: 19970605
  2. PAROXETINE HCL [Suspect]
     Dosage: 20 MG; QD; 30 MG; QD; 20 MG; QOD
     Dates: start: 19980120
  3. PAROXETINE HCL [Suspect]
     Dosage: 20 MG; QD; 30 MG; QD; 20 MG; QOD
     Dates: start: 19980302
  4. PAROXETINE HCL [Suspect]
     Dosage: 20 MG; QD; 30 MG; QD; 20 MG; QOD
     Dates: start: 19980713
  5. PAROXETINE HCL [Suspect]
     Dosage: 20 MG; QD; 30 MG; QD; 20 MG; QOD
     Dates: start: 19981214
  6. PAROXETINE HCL [Suspect]
     Dosage: 20 MG; QD; 30 MG; QD; 20 MG; QOD
     Dates: start: 19990112
  7. PAROXETINE HCL [Suspect]
     Dosage: 20 MG; QD; 30 MG; QD; 20 MG; QOD
     Dates: start: 19990301
  8. PAROXETINE HCL [Suspect]
     Dosage: 20 MG; QD; 30 MG; QD; 20 MG; QOD
     Dates: start: 20000901
  9. PAROXETINE HCL [Suspect]
     Dosage: 20 MG; QD; 30 MG; QD; 20 MG; QOD
     Dates: start: 20010101
  10. PAROXETINE HCL [Suspect]
     Dosage: 20 MG; QD; 30 MG; QD; 20 MG; QOD
     Dates: start: 20080201
  11. PAROXETINE HCL [Suspect]
     Dosage: 20 MG; QD; 30 MG; QD; 20 MG; QOD
     Dates: start: 20080306
  12. PAROXETINE HCL [Suspect]
     Dosage: 20 MG; QD; 30 MG; QD; 20 MG; QOD
     Dates: start: 20080416
  13. PAROXETINE HCL [Suspect]
     Dosage: 20 MG; QD; 30 MG; QD; 20 MG; QOD
     Dates: start: 20080429
  14. PROPRANOLOL [Concomitant]

REACTIONS (16)
  - AGITATION [None]
  - ANXIETY [None]
  - CONFUSIONAL STATE [None]
  - DEATH OF RELATIVE [None]
  - DIZZINESS [None]
  - DRUG WITHDRAWAL SYNDROME [None]
  - HYPERHIDROSIS [None]
  - HYPOAESTHESIA FACIAL [None]
  - ILL-DEFINED DISORDER [None]
  - INFLUENZA LIKE ILLNESS [None]
  - NEGATIVE THOUGHTS [None]
  - NIGHTMARE [None]
  - PANIC ATTACK [None]
  - PARAESTHESIA [None]
  - SUICIDAL IDEATION [None]
  - TREMOR [None]
